FAERS Safety Report 19218383 (Version 1)
Quarter: 2021Q2

REPORT INFORMATION
  Report Type: Spontaneous
  Country: US (occurrence: US)
  Receive Date: 20210505
  Receipt Date: 20210505
  Transmission Date: 20210717
  Serious: No
  Sender: FDA-Public Use
  Company Number: US-PFIZER INC-2021488051

PATIENT
  Age: 71 Year
  Sex: Male

DRUGS (1)
  1. IBRANCE [Suspect]
     Active Substance: PALBOCICLIB
     Indication: BREAST CANCER FEMALE
     Dosage: 125 MG, 1X/DAY (TAKE 1 ORALLY ONCE A DAY FOR 21 DAYS, TAKE WITH WATER OR FOOD SAME TIME ONCE A DAY)
     Route: 048
     Dates: start: 20190523

REACTIONS (1)
  - Neoplasm progression [Unknown]
